FAERS Safety Report 8844329 (Version 1)
Quarter: 2012Q4

REPORT INFORMATION
  Report Type: 
  Country: BR (occurrence: BR)
  Receive Date: 20121017
  Receipt Date: 20121017
  Transmission Date: 20130627
  Serious: Yes (Other)
  Sender: FDA-Public Use
  Company Number: BR-SANOFI-AVENTIS-2012SA074500

PATIENT
  Age: 86 Year
  Sex: Female
  Weight: 64 kg

DRUGS (7)
  1. LANTUS [Suspect]
     Indication: TYPE II DIABETES MELLITUS
     Route: 058
  2. AUTOPEN 24 [Concomitant]
     Indication: DEVICE THERAPY
  3. CALCIUM CARBONATE [Concomitant]
     Indication: OSTEOPOROSIS
     Route: 048
  4. LOSARTAN [Concomitant]
     Indication: BLOOD PRESSURE
     Route: 048
  5. HIGROTON [Concomitant]
     Indication: BLOOD PRESSURE HIGH
     Route: 048
  6. AMLODIPINE [Concomitant]
     Indication: BLOOD PRESSURE
     Route: 048
  7. VITAMIN C [Concomitant]
     Indication: NUTRITIONAL SUPPORT
     Route: 048

REACTIONS (6)
  - Age-related macular degeneration [Unknown]
  - Visual acuity reduced [Unknown]
  - Retinal haemorrhage [Unknown]
  - Muscle spasms [Unknown]
  - Pain [Recovered/Resolved]
  - Swelling [Recovered/Resolved]
